FAERS Safety Report 7219384-4 (Version None)
Quarter: 2011Q1

REPORT INFORMATION
  Report Type: 
  Country: None (occurrence: None)
  Receive Date: 20110111
  Receipt Date: 20110104
  Transmission Date: 20110831
  Serious: No
  Sender: FDA-Public Use
  Company Number: US-PFIZER INC-2010027100

PATIENT
  Sex: Female
  Weight: 60.3 kg

DRUGS (6)
  1. OMEPRAZOLE [Concomitant]
     Indication: GASTROOESOPHAGEAL REFLUX DISEASE
     Dosage: UNK
     Route: 048
  2. FOLIC ACID [Concomitant]
     Indication: BLOOD CHOLESTEROL INCREASED
     Dosage: UNK
     Route: 048
  3. ATENOLOL [Concomitant]
     Dosage: UNK
  4. LOPRESSOR [Concomitant]
     Indication: HYPERTENSION
     Dosage: UNK
     Route: 048
  5. AROMASIN [Suspect]
     Indication: BREAST CANCER STAGE I
     Dosage: 25 MG, 1X/DAY
     Route: 048
     Dates: start: 20100204
  6. LIPITOR [Concomitant]
     Indication: BLOOD CHOLESTEROL INCREASED
     Dosage: UNK
     Route: 048

REACTIONS (5)
  - HYPERHIDROSIS [None]
  - ERYTHEMA [None]
  - PRURITUS [None]
  - BURNING SENSATION [None]
  - ALOPECIA [None]
